FAERS Safety Report 5850023-0 (Version None)
Quarter: 2008Q3

REPORT INFORMATION
  Report Type: 
  Country: None (occurrence: None)
  Receive Date: 20080819
  Receipt Date: 20080814
  Transmission Date: 20090109
  Serious: Yes (Other)
  Sender: FDA-Public Use
  Company Number: GB-ALLERGAN-0810069US

PATIENT
  Sex: Female

DRUGS (2)
  1. CELLUVISC [Suspect]
     Indication: DRY EYE
     Dosage: UNK, TID
     Route: 047
  2. FML [Suspect]
     Indication: DRUG USE FOR UNKNOWN INDICATION
     Route: 047
     Dates: start: 20050101, end: 20070101

REACTIONS (1)
  - CATARACT [None]
